FAERS Safety Report 20532120 (Version 1)
Quarter: 2022Q1

REPORT INFORMATION
  Report Type: Spontaneous
  Country: US (occurrence: None)
  Receive Date: 20220301
  Receipt Date: 20220301
  Transmission Date: 20220423
  Serious: No
  Sender: FDA-Public Use
  Company Number: None

PATIENT
  Age: 62 Year
  Sex: Male
  Weight: 51.8 kg

DRUGS (1)
  1. LENALIDOMIDE [Suspect]
     Active Substance: LENALIDOMIDE
     Indication: Neutrophil count decreased
     Dates: end: 20220105

REACTIONS (4)
  - Neutrophil count decreased [None]
  - Myelodysplastic syndrome [None]
  - Fluorescent in situ hybridisation positive [None]
  - Therapy cessation [None]

NARRATIVE: CASE EVENT DATE: 20220223
